FAERS Safety Report 20475919 (Version 11)
Quarter: 2022Q4

REPORT INFORMATION
  Report Type: Report from Study
  Country: US (occurrence: US)
  Receive Date: 20220215
  Receipt Date: 20221121
  Transmission Date: 20230113
  Serious: Yes (Death, Hospitalization, Other)
  Sender: FDA-Public Use
  Company Number: US-TAKEDA-2022TUS010123

PATIENT
  Age: 91 Year
  Sex: Male

DRUGS (29)
  1. TEDUGLUTIDE [Suspect]
     Active Substance: TEDUGLUTIDE
     Indication: Malnutrition
     Dosage: 2.85 MILLIGRAM, QD
     Route: 058
     Dates: start: 20220101
  2. TEDUGLUTIDE [Suspect]
     Active Substance: TEDUGLUTIDE
     Indication: Malnutrition
     Dosage: 2.85 MILLIGRAM, QD
     Route: 058
     Dates: start: 20220101
  3. TEDUGLUTIDE [Suspect]
     Active Substance: TEDUGLUTIDE
     Indication: Malnutrition
     Dosage: 2.85 MILLIGRAM, QD
     Route: 058
     Dates: start: 20220101
  4. TEDUGLUTIDE [Suspect]
     Active Substance: TEDUGLUTIDE
     Indication: Malnutrition
     Dosage: 2.85 MILLIGRAM, QD
     Route: 058
     Dates: start: 20220101
  5. TEDUGLUTIDE [Suspect]
     Active Substance: TEDUGLUTIDE
     Indication: Post procedural complication
     Dosage: 2.85 MILLIGRAM, QD
     Route: 058
     Dates: start: 20220110
  6. TEDUGLUTIDE [Suspect]
     Active Substance: TEDUGLUTIDE
     Indication: Post procedural complication
     Dosage: 2.85 MILLIGRAM, QD
     Route: 058
     Dates: start: 20220110
  7. TEDUGLUTIDE [Suspect]
     Active Substance: TEDUGLUTIDE
     Indication: Post procedural complication
     Dosage: 2.85 MILLIGRAM, QD
     Route: 058
     Dates: start: 20220110
  8. TEDUGLUTIDE [Suspect]
     Active Substance: TEDUGLUTIDE
     Indication: Post procedural complication
     Dosage: 2.85 MILLIGRAM, QD
     Route: 058
     Dates: start: 20220110
  9. TEDUGLUTIDE [Suspect]
     Active Substance: TEDUGLUTIDE
     Indication: Diarrhoea
     Dosage: 2.85 MILLIGRAM, QD
     Route: 058
     Dates: start: 20220115
  10. TEDUGLUTIDE [Suspect]
     Active Substance: TEDUGLUTIDE
     Indication: Diarrhoea
     Dosage: 2.85 MILLIGRAM, QD
     Route: 058
     Dates: start: 20220115
  11. TEDUGLUTIDE [Suspect]
     Active Substance: TEDUGLUTIDE
     Indication: Diarrhoea
     Dosage: 2.85 MILLIGRAM, QD
     Route: 058
     Dates: start: 20220115
  12. TEDUGLUTIDE [Suspect]
     Active Substance: TEDUGLUTIDE
     Indication: Diarrhoea
     Dosage: 2.85 MILLIGRAM, QD
     Route: 058
     Dates: start: 20220115
  13. TEDUGLUTIDE [Suspect]
     Active Substance: TEDUGLUTIDE
     Indication: Short-bowel syndrome
     Dosage: 2.85 MILLIGRAM, QD
     Route: 058
     Dates: start: 20220119
  14. TEDUGLUTIDE [Suspect]
     Active Substance: TEDUGLUTIDE
     Indication: Short-bowel syndrome
     Dosage: 2.85 MILLIGRAM, QD
     Route: 058
     Dates: start: 20220119
  15. TEDUGLUTIDE [Suspect]
     Active Substance: TEDUGLUTIDE
     Indication: Short-bowel syndrome
     Dosage: 2.85 MILLIGRAM, QD
     Route: 058
     Dates: start: 20220119
  16. TEDUGLUTIDE [Suspect]
     Active Substance: TEDUGLUTIDE
     Indication: Short-bowel syndrome
     Dosage: 2.85 MILLIGRAM, QD
     Route: 058
     Dates: start: 20220119
  17. TEDUGLUTIDE [Suspect]
     Active Substance: TEDUGLUTIDE
     Indication: Crohn^s disease
     Dosage: 2.85 MILLIGRAM, QD
     Route: 058
     Dates: start: 20220120
  18. TEDUGLUTIDE [Suspect]
     Active Substance: TEDUGLUTIDE
     Indication: Crohn^s disease
     Dosage: 2.85 MILLIGRAM, QD
     Route: 058
     Dates: start: 20220120
  19. TEDUGLUTIDE [Suspect]
     Active Substance: TEDUGLUTIDE
     Indication: Crohn^s disease
     Dosage: 2.85 MILLIGRAM, QD
     Route: 058
     Dates: start: 20220120
  20. TEDUGLUTIDE [Suspect]
     Active Substance: TEDUGLUTIDE
     Indication: Crohn^s disease
     Dosage: 2.85 MILLIGRAM, QD
     Route: 058
     Dates: start: 20220120
  21. TEDUGLUTIDE [Suspect]
     Active Substance: TEDUGLUTIDE
     Dosage: 2.85 MILLIGRAM, QD
     Route: 058
     Dates: start: 202201
  22. TEDUGLUTIDE [Suspect]
     Active Substance: TEDUGLUTIDE
     Dosage: 2.85 MILLIGRAM, QD
     Route: 058
     Dates: start: 202201
  23. TEDUGLUTIDE [Suspect]
     Active Substance: TEDUGLUTIDE
     Dosage: 2.85 MILLIGRAM, QD
     Route: 058
     Dates: start: 202201
  24. TEDUGLUTIDE [Suspect]
     Active Substance: TEDUGLUTIDE
     Dosage: 2.85 MILLIGRAM, QD
     Route: 058
     Dates: start: 202201
  25. TEDUGLUTIDE [Suspect]
     Active Substance: TEDUGLUTIDE
     Dosage: 2.85 MILLIGRAM, QD
     Route: 058
     Dates: start: 20220121
  26. TEDUGLUTIDE [Suspect]
     Active Substance: TEDUGLUTIDE
     Dosage: 2.85 MILLIGRAM, QD
     Route: 058
     Dates: start: 20220121
  27. TEDUGLUTIDE [Suspect]
     Active Substance: TEDUGLUTIDE
     Dosage: 2.85 MILLIGRAM, QD
     Route: 058
     Dates: start: 20220121
  28. TEDUGLUTIDE [Suspect]
     Active Substance: TEDUGLUTIDE
     Dosage: 2.85 MILLIGRAM, QD
     Route: 058
     Dates: start: 20220121
  29. OCTREOTIDE [Concomitant]
     Active Substance: OCTREOTIDE
     Dosage: UNK
     Route: 065

REACTIONS (16)
  - Death [Fatal]
  - Blood pressure decreased [Unknown]
  - Syncope [Unknown]
  - Intestinal obstruction [Unknown]
  - Stoma complication [Unknown]
  - Fluid retention [Unknown]
  - Peripheral swelling [Recovering/Resolving]
  - Flatulence [Unknown]
  - Wound [Unknown]
  - Stoma prolapse [Unknown]
  - Weight decreased [Unknown]
  - Asthenia [Unknown]
  - Oedema peripheral [Unknown]
  - Device difficult to use [Unknown]
  - Off label use [Unknown]
  - Product dose omission issue [Unknown]

NARRATIVE: CASE EVENT DATE: 20220325
